FAERS Safety Report 14551571 (Version 3)
Quarter: 2018Q2

REPORT INFORMATION
  Report Type: Report from Study
  Country: NL (occurrence: NL)
  Receive Date: 20180220
  Receipt Date: 20180417
  Transmission Date: 20180711
  Serious: Yes (Hospitalization, Other)
  Sender: FDA-Public Use
  Company Number: NL-AMGEN-NLDSL2018022722

PATIENT
  Age: 65 Year
  Sex: Male

DRUGS (5)
  1. TAMSULOSINE [Concomitant]
     Active Substance: TAMSULOSIN HYDROCHLORIDE
     Dosage: 0.4 MG, (1X)
  2. GOSERELINE [Concomitant]
     Active Substance: GOSERELIN
     Dosage: 10.8 MG, (1 X 13 MND)
  3. NEULASTA [Suspect]
     Active Substance: PEGFILGRASTIM
     Indication: FEBRILE NEUTROPENIA
  4. PREDNISON [Concomitant]
     Active Substance: PREDNISONE
     Dosage: 5 MG, BID
  5. NEULASTA [Suspect]
     Active Substance: PEGFILGRASTIM
     Indication: NEUTROPENIA
     Dosage: 6 MG, Q3WK
     Route: 058

REACTIONS (3)
  - Prostate cancer [Unknown]
  - Myalgia [Unknown]
  - Bone pain [Unknown]
